FAERS Safety Report 8115578-4 (Version None)
Quarter: 2012Q1

REPORT INFORMATION
  Report Type: 
  Country: None (occurrence: None)
  Receive Date: 20120206
  Receipt Date: 20120126
  Transmission Date: 20120608
  Serious: Yes (Death, Hospitalization)
  Sender: FDA-Public Use
  Company Number: FR-PFIZER INC-K200901171

PATIENT
  Age: 47 Year
  Sex: Female

DRUGS (6)
  1. RAMIPRIL [Suspect]
     Dosage: UNK
     Route: 048
     Dates: start: 20090415, end: 20090811
  2. PLAVIX [Suspect]
     Indication: STENT PLACEMENT
     Dosage: 75 MG, 1X/DAY
     Route: 048
     Dates: start: 20090415, end: 20090811
  3. BISOPROLOL [Suspect]
     Indication: MYOCARDIAL INFARCTION
     Dosage: UNK
     Route: 048
     Dates: start: 20090415, end: 20090828
  4. ASPIRIN [Suspect]
     Indication: MYOCARDIAL INFARCTION
     Dosage: UNK
     Dates: start: 20090415, end: 20090828
  5. OMACOR [Suspect]
     Indication: MYOCARDIAL INFARCTION
     Dosage: UNK
     Dates: start: 20090415, end: 20090730
  6. ATORVASTATIN [Suspect]
     Dosage: UNK
     Route: 048
     Dates: start: 20090415, end: 20090713

REACTIONS (16)
  - CHOLESTASIS [None]
  - HEPATIC ENCEPHALOPATHY [None]
  - CYTOLYTIC HEPATITIS [None]
  - PYREXIA [None]
  - ESCHERICHIA INFECTION [None]
  - JAUNDICE [None]
  - GASTROINTESTINAL DISORDER [None]
  - PRURITUS [None]
  - VOMITING [None]
  - SEPTIC SHOCK [None]
  - HEPATITIS FULMINANT [None]
  - NAUSEA [None]
  - HEPATIC FAILURE [None]
  - ASPARTATE AMINOTRANSFERASE INCREASED [None]
  - ALANINE AMINOTRANSFERASE INCREASED [None]
  - DISSEMINATED INTRAVASCULAR COAGULATION [None]
